FAERS Safety Report 5554960-6 (Version None)
Quarter: 2007Q4

REPORT INFORMATION
  Report Type: 
  Country: None (occurrence: None)
  Receive Date: 20071213
  Receipt Date: 20071205
  Transmission Date: 20080405
  Serious: Yes (Death)
  Sender: FDA-Public Use
  Company Number: JP-ASTRAZENECA-2007SE06549

PATIENT
  Age: 66 Year
  Sex: Female

DRUGS (1)
  1. BLOPRESS TABLETS 8 [Suspect]
     Route: 048
     Dates: start: 20030801, end: 20040701

REACTIONS (2)
  - INTERSTITIAL LUNG DISEASE [None]
  - PANCYTOPENIA [None]
